FAERS Safety Report 22912752 (Version 3)
Quarter: 2024Q3

REPORT INFORMATION
  Report Type: Spontaneous
  Country: US (occurrence: US)
  Receive Date: 20230906
  Receipt Date: 20240904
  Transmission Date: 20241016
  Serious: No
  Sender: AMNEAL
  Company Number: US-AMNEAL PHARMACEUTICALS-2023-AMRX-02022

PATIENT
  Sex: Female

DRUGS (2)
  1. DIFLUPREDNATE [Suspect]
     Active Substance: DIFLUPREDNATE
     Indication: Product used for unknown indication
     Dosage: 0.05 PERCENT
     Route: 047
  2. DIFLUPREDNATE [Suspect]
     Active Substance: DIFLUPREDNATE
     Dosage: 0.05 PERCENT
     Route: 047
     Dates: start: 202404

REACTIONS (3)
  - Device breakage [Unknown]
  - Device breakage [Unknown]
  - No adverse event [Unknown]

NARRATIVE: CASE EVENT DATE: 20230604
